FAERS Safety Report 7988011-0 (Version None)
Quarter: 2011Q4

REPORT INFORMATION
  Report Type: 
  Country: None (occurrence: None)
  Receive Date: 20111216
  Receipt Date: 20101206
  Transmission Date: 20120403
  Serious: No
  Sender: FDA-Public Use
  Company Number: US-BRISTOL-MYERS SQUIBB COMPANY-15404981

PATIENT
  Age: 37 Year
  Sex: Female
  Weight: 95 kg

DRUGS (7)
  1. KLONOPIN [Concomitant]
     Dosage: 1 DF=0.5 UNITS NOT SPECIFIED
  2. DIGOXIN [Concomitant]
  3. GLUCOPHAGE [Concomitant]
  4. ABILIFY [Suspect]
     Indication: BIPOLAR DISORDER
     Dosage: 10MG IN THE MORNING AND 10MG AT NIGHT, STARTED 3 WEEKS AGO
     Dates: start: 20101014
  5. ASPIRIN [Concomitant]
     Dosage: 2 DF= 81MG, 2 TABS AT NIGHT.
  6. WELLBUTRIN [Concomitant]
  7. LOPRESSOR [Concomitant]

REACTIONS (2)
  - ABNORMAL SENSATION IN EYE [None]
  - VISION BLURRED [None]
